FAERS Safety Report 15613641 (Version 1)
Quarter: 2018Q4

REPORT INFORMATION
  Report Type: Spontaneous
  Country: TW (occurrence: TW)
  Receive Date: 20181113
  Receipt Date: 20181113
  Transmission Date: 20190205
  Serious: Yes (Death, Life-Threatening)
  Sender: FDA-Public Use
  Company Number: TW-BAYER-2018-204417

PATIENT
  Age: 59 Year
  Sex: Female

DRUGS (6)
  1. AVELOX [Suspect]
     Active Substance: MOXIFLOXACIN HYDROCHLORIDE
     Indication: PNEUMONIA
     Dosage: UNK
  2. AVELOX [Suspect]
     Active Substance: MOXIFLOXACIN HYDROCHLORIDE
     Indication: PHARYNGITIS
  3. DICLOFENAC [Suspect]
     Active Substance: DICLOFENAC
     Indication: PHARYNGITIS
  4. NORFLOXACIN [Suspect]
     Active Substance: NORFLOXACIN
     Indication: PNEUMONIA
     Dosage: UNK
  5. NORFLOXACIN [Suspect]
     Active Substance: NORFLOXACIN
     Indication: PHARYNGITIS
  6. DICLOFENAC [Suspect]
     Active Substance: DICLOFENAC
     Indication: PNEUMONIA

REACTIONS (2)
  - Sepsis [Fatal]
  - Anaphylactic shock [None]
